FAERS Safety Report 6293791-9 (Version None)
Quarter: 2009Q3

REPORT INFORMATION
  Report Type: 
  Country: None (occurrence: None)
  Receive Date: 20090803
  Receipt Date: 20090723
  Transmission Date: 20100115
  Serious: Yes (Death, Hospitalization, Other)
  Sender: FDA-Public Use
  Company Number: US-AMGEN-STX298982

PATIENT
  Sex: Male
  Weight: 83.5 kg

DRUGS (11)
  1. ENBREL [Suspect]
     Indication: RHEUMATOID ARTHRITIS
     Route: 058
     Dates: start: 20000101, end: 20090510
  2. METHOTREXATE [Suspect]
  3. UNSPECIFIED DIURETIC [Concomitant]
     Route: 065
  4. UNSPECIFIED ANTIHYPERTENSIVE AGENT [Concomitant]
     Route: 065
  5. TRIAMTERENE [Concomitant]
  6. XANAX [Concomitant]
  7. CAL CITRATE [Concomitant]
  8. MULTIVITAMIN [Concomitant]
     Route: 047
  9. ASPIRIN [Concomitant]
  10. DILTIAZEM [Concomitant]
  11. COZAAR [Concomitant]

REACTIONS (10)
  - ACUTE RESPIRATORY FAILURE [None]
  - ATRIAL FIBRILLATION [None]
  - CRYPTOGENIC CIRRHOSIS [None]
  - DEATH [None]
  - DIVERTICULUM [None]
  - LUNG INFECTION PSEUDOMONAL [None]
  - PAIN [None]
  - RED BLOOD CELL SEDIMENTATION RATE INCREASED [None]
  - RHEUMATOID ARTHRITIS [None]
  - SEPSIS PASTEURELLA [None]
